FAERS Safety Report 8332825-4 (Version None)
Quarter: 2012Q2

REPORT INFORMATION
  Report Type: 
  Country: None (occurrence: None)
  Receive Date: 20120503
  Receipt Date: 20120425
  Transmission Date: 20120825
  Serious: Yes (Hospitalization)
  Sender: FDA-Public Use
  Company Number: US-BAYER-2011-036947

PATIENT
  Age: 28 Year
  Sex: Female

DRUGS (6)
  1. YAZ [Suspect]
  2. OXYCODONE HCL AND ACETAMINOPHEN [Concomitant]
     Dosage: 10/325 MG
     Route: 048
     Dates: start: 20090408
  3. YASMIN [Suspect]
  4. ULTRAM [Concomitant]
  5. VALTREX [Concomitant]
     Dosage: 500 MG, UNK
     Route: 048
     Dates: start: 20070724, end: 20090626
  6. PERCOCET [Concomitant]

REACTIONS (4)
  - DEEP VEIN THROMBOSIS [None]
  - PULMONARY EMBOLISM [None]
  - INJURY [None]
  - PAIN [None]
